FAERS Safety Report 7147955-2 (Version None)
Quarter: 2010Q4

REPORT INFORMATION
  Report Type: 
  Country: None (occurrence: None)
  Receive Date: 20101209
  Receipt Date: 20101129
  Transmission Date: 20110411
  Serious: Yes (Hospitalization, Other)
  Sender: FDA-Public Use
  Company Number: US-ABBOTT-10P-163-0687188-00

PATIENT
  Sex: Female

DRUGS (2)
  1. LUPRON [Suspect]
     Indication: PRODUCT USED FOR UNKNOWN INDICATION
     Dates: start: 20090101
  2. VICODIN [Concomitant]
     Indication: PAIN

REACTIONS (5)
  - ENDOMETRIOSIS [None]
  - HUNGER [None]
  - OVARIAN DISORDER [None]
  - PAIN [None]
  - SWELLING [None]
